FAERS Safety Report 6399671-2 (Version None)
Quarter: 2009Q4

REPORT INFORMATION
  Report Type: 
  Country: None (occurrence: None)
  Receive Date: 20091014
  Receipt Date: 20091005
  Transmission Date: 20100525
  Serious: Yes (Other)
  Sender: FDA-Public Use
  Company Number: GB-ROCHE-660562

PATIENT
  Age: 12 Year
  Sex: Female
  Weight: 56.1 kg

DRUGS (2)
  1. ISOTRETINOIN [Suspect]
     Indication: DRUG USE FOR UNKNOWN INDICATION
     Route: 048
     Dates: start: 20090811
  2. DIANETTE [Concomitant]
     Route: 048
     Dates: start: 20090602, end: 20090811

REACTIONS (3)
  - HEADACHE [None]
  - LOSS OF CONSCIOUSNESS [None]
  - TREMOR [None]
